FAERS Safety Report 10599189 (Version 7)
Quarter: 2022Q1

REPORT INFORMATION
  Report Type: Report from Study
  Country: CA (occurrence: CA)
  Receive Date: 20141121
  Receipt Date: 20220304
  Transmission Date: 20220424
  Serious: Yes (Other)
  Sender: FDA-Public Use
  Company Number: PHHY2014CA148439

PATIENT
  Age: 56 Year
  Sex: Female

DRUGS (6)
  1. GILENYA [Suspect]
     Active Substance: FINGOLIMOD HYDROCHLORIDE
     Indication: Relapsing-remitting multiple sclerosis
     Dosage: UNK
     Route: 048
     Dates: start: 20141106, end: 20141120
  2. GILENYA [Suspect]
     Active Substance: FINGOLIMOD HYDROCHLORIDE
     Dosage: UNK
     Route: 048
     Dates: start: 20141216
  3. GILENYA [Suspect]
     Active Substance: FINGOLIMOD HYDROCHLORIDE
     Dosage: QOD
     Route: 048
     Dates: start: 20150109
  4. GILENYA [Suspect]
     Active Substance: FINGOLIMOD HYDROCHLORIDE
     Dosage: UNK UNK, Q72H (EVERY 3 DAYS)
     Route: 048
  5. GILENYA [Suspect]
     Active Substance: FINGOLIMOD HYDROCHLORIDE
     Dosage: UNK
     Route: 065
     Dates: start: 20141216, end: 20170720
  6. TYSABRI [Concomitant]
     Active Substance: NATALIZUMAB
     Indication: Product used for unknown indication
     Dosage: UNK
     Route: 065
     Dates: start: 20170821, end: 20211230

REACTIONS (9)
  - Bundle branch block right [Recovered/Resolved]
  - Atrioventricular block second degree [Recovered/Resolved]
  - Expanded disability status scale score increased [Unknown]
  - Inappropriate schedule of product administration [Unknown]
  - Underdose [Unknown]
  - Heart rate decreased [Unknown]
  - Blood pressure decreased [Unknown]
  - Hepatic enzyme increased [Unknown]
  - Hepatic enzyme increased [Recovered/Resolved]

NARRATIVE: CASE EVENT DATE: 20141106
